FAERS Safety Report 4467682-X (Version None)
Quarter: 2004Q4

REPORT INFORMATION
  Report Type: 
  Country: None (occurrence: None)
  Receive Date: 20041004
  Receipt Date: 20041004
  Transmission Date: 20050328
  Serious: No
  Sender: FDA-Public Use
  Company Number: None

PATIENT
  Age: 42 Year
  Sex: Female
  Weight: 87.0906 kg

DRUGS (3)
  1. VIOXX [Suspect]
     Indication: ARTHRALGIA
     Dosage: 1 OR 2 ONCE DAILY
     Dates: start: 20040725, end: 20040930
  2. VIOXX [Suspect]
     Indication: ARTHRITIS
     Dosage: 1 OR 2 ONCE DAILY
     Dates: start: 20040725, end: 20040930
  3. VIOXX [Suspect]
     Indication: BACK PAIN
     Dosage: 1 OR 2 ONCE DAILY
     Dates: start: 20040725, end: 20040930

REACTIONS (6)
  - DEEP VEIN THROMBOSIS [None]
  - ERYTHEMA [None]
  - OEDEMA PERIPHERAL [None]
  - PAIN IN EXTREMITY [None]
  - THERAPY NON-RESPONDER [None]
  - THROMBOSIS [None]
